FAERS Safety Report 7156091-0 (Version None)
Quarter: 2010Q4

REPORT INFORMATION
  Report Type: 
  Country: None (occurrence: None)
  Receive Date: 20101214
  Receipt Date: 20101203
  Transmission Date: 20110411
  Serious: Yes (Other)
  Sender: FDA-Public Use
  Company Number: US-PFIZER INC-2010164146

PATIENT
  Sex: Female
  Weight: 95.2 kg

DRUGS (17)
  1. LYRICA [Suspect]
     Indication: DIABETIC NEUROPATHY
     Dosage: 75 MG, 2X/DAY
     Route: 048
     Dates: start: 20101124, end: 20101203
  2. LYRICA [Suspect]
     Indication: FIBROMYALGIA
  3. LEVETIRACETAM [Concomitant]
     Indication: CONVULSION
     Dosage: 500 MG, UNK
  4. PLAVIX [Concomitant]
     Indication: THROMBOSIS
     Dosage: 75 MG, UNK
  5. PRAMIPEXOLE [Concomitant]
     Indication: PARKINSONISM
     Dosage: 0.5 MG, UNK
  6. CELEBREX [Concomitant]
     Dosage: TWO CAPSULES DAILY
  7. VENLAFAXINE [Concomitant]
     Dosage: 75 MG, 1X/DAY
  8. METFORMIN [Concomitant]
     Dosage: 500 MG, AS NEEDED
  9. NEXIUM [Concomitant]
     Dosage: 40 MG, UNK
  10. FEXOFENADINE [Concomitant]
     Dosage: 100 MG, UNK
  11. FLUTICASONE PROPIONATE [Concomitant]
     Indication: EAR DISORDER
     Dosage: UNK
  12. NEBIVOLOL [Concomitant]
     Indication: HYPERTENSION
     Dosage: 10 MG, UNK
  13. LEVOTHYROXINE [Concomitant]
     Dosage: 150 UG, DAILY
  14. EPHEDRINE [Concomitant]
     Dosage: UNK
  15. CYCLOBENZAPRINE [Concomitant]
     Dosage: 10 MG, UNK
  16. CARBIDOPA + LEVODOPA [Concomitant]
     Dosage: UNK
  17. ACETAMINOPHEN AND HYDROCODONE BITARTRATE [Concomitant]
     Dosage: 5/325 MG

REACTIONS (17)
  - ASTHENIA [None]
  - CARDIAC DISORDER [None]
  - DIZZINESS [None]
  - DRUG HYPERSENSITIVITY [None]
  - DRY MOUTH [None]
  - DRY THROAT [None]
  - DYSPHAGIA [None]
  - DYSPNOEA [None]
  - EYE DISORDER [None]
  - GAIT DISTURBANCE [None]
  - GINGIVAL SWELLING [None]
  - JOINT SWELLING [None]
  - OEDEMA PERIPHERAL [None]
  - PHARYNGEAL OEDEMA [None]
  - RASH [None]
  - SWOLLEN TONGUE [None]
  - VISUAL ACUITY REDUCED [None]
